FAERS Safety Report 21934940 (Version 2)
Quarter: 2023Q1

REPORT INFORMATION
  Report Type: Spontaneous
  Country: JP (occurrence: None)
  Receive Date: 20230201
  Receipt Date: 20230207
  Transmission Date: 20230418
  Serious: Yes (Hospitalization)
  Sender: FDA-Public Use
  Company Number: 2023A023289

PATIENT
  Age: 90 Year
  Sex: Male

DRUGS (1)
  1. DAPAGLIFLOZIN [Suspect]
     Active Substance: DAPAGLIFLOZIN
     Indication: Diabetes mellitus
     Route: 048

REACTIONS (5)
  - Inguinal hernia [Unknown]
  - Dry skin [Unknown]
  - Skin fissures [Unknown]
  - Glycosylated haemoglobin [Unknown]
  - Diabetes mellitus inadequate control [Unknown]
